FAERS Safety Report 5256428-3 (Version None)
Quarter: 2007Q1

REPORT INFORMATION
  Report Type: 
  Country: None (occurrence: None)
  Receive Date: 20061204
  Receipt Date: 20060928
  Transmission Date: 20070707
  Serious: No
  Sender: FDA-Public Use
  Company Number: 2006-BP*10718BP

PATIENT
  Age: 80 Year
  Sex: Female

DRUGS (9)
  1. SPIRIVA [Suspect]
     Indication: CHRONIC OBSTRUCTIVE PULMONARY DISEASE
     Dosage: 18 MCG (18 MCG, 1 IN 1 D), IH
     Route: 055
     Dates: start: 20050101
  2. ALBUTEROL [Concomitant]
  3. ADVAIR (SERETIDE/01420901) [Concomitant]
  4. K-DUR 10 [Concomitant]
  5. LASIX [Concomitant]
  6. COUMADIN [Concomitant]
  7. HYZAAR [Concomitant]
  8. FOSAMAX [Concomitant]
  9. FORADIL [Concomitant]

REACTIONS (1)
  - DYSPNOEA [None]
